FAERS Safety Report 8589166-X (Version None)
Quarter: 2012Q3

REPORT INFORMATION
  Report Type: 
  Country: None (occurrence: None)
  Receive Date: 20120813
  Receipt Date: 20120803
  Transmission Date: 20120928
  Serious: Yes (Other)
  Sender: FDA-Public Use
  Company Number: FR-UCBSA-062875

PATIENT
  Age: 37 Year
  Sex: Male

DRUGS (3)
  1. XYZAL [Suspect]
     Indication: URTICARIA PAPULAR
     Dates: start: 20120701
  2. ARIXTRA [Suspect]
     Indication: THROMBOSIS PROPHYLAXIS
     Route: 058
     Dates: start: 20120616
  3. KEPPRA [Suspect]
     Route: 048
     Dates: start: 20120601

REACTIONS (3)
  - CONFABULATION [None]
  - PRURITUS GENERALISED [None]
  - RASH GENERALISED [None]
